FAERS Safety Report 6664343-3 (Version None)
Quarter: 2010Q2

REPORT INFORMATION
  Report Type: 
  Country: None (occurrence: None)
  Receive Date: 20100401
  Receipt Date: 20100324
  Transmission Date: 20101027
  Serious: Yes (Hospitalization)
  Sender: FDA-Public Use
  Company Number: GXKR2010GB03483

PATIENT
  Age: 46 Year
  Sex: Male

DRUGS (12)
  1. CARBOPLATIN [Suspect]
     Indication: METASTATIC MALIGNANT MELANOMA
     Route: 065
  2. DEXAMETHASONE (NGX) [Suspect]
     Indication: FATIGUE
     Dosage: 2 MG, DAILY
     Route: 065
  3. DEXAMETHASONE (NGX) [Suspect]
     Dosage: 4 MG, DAILY
     Route: 065
  4. NAPROXEN (NGX) [Suspect]
     Indication: PAIN
     Dosage: 500 MG, BID
     Route: 065
  5. MOVICOL [Suspect]
     Indication: CONSTIPATION
     Dosage: SIX SACHETS EACH DAY IN THE WEEK PRIOR TO ADMISSION
     Route: 065
  6. DIAMORPHINE [Concomitant]
     Indication: ANALGESIC THERAPY
     Dosage: 100 MG, UNK
     Route: 058
  7. HYDROCORTISONE [Concomitant]
  8. KETAMINE HCL [Concomitant]
     Indication: ANALGESIC THERAPY
  9. MIDAZOLAM HCL [Concomitant]
     Indication: ANALGESIC THERAPY
     Dosage: 10 MG, OVER 24 HOURS
     Route: 058
  10. MORPHINE SULFATE [Concomitant]
     Indication: ANALGESIC THERAPY
     Dosage: 90 MG, BID
     Route: 065
  11. WARFARIN SODIUM [Concomitant]
     Indication: PULMONARY EMBOLISM
  12. WARFARIN SODIUM [Concomitant]
     Indication: DEEP VEIN THROMBOSIS

REACTIONS (9)
  - ABDOMINAL PAIN [None]
  - ASTHENIA [None]
  - CONFUSIONAL STATE [None]
  - HYPERHIDROSIS [None]
  - HYPERKALAEMIA [None]
  - HYPONATRAEMIA [None]
  - HYPOTENSION [None]
  - LETHARGY [None]
  - TACHYCARDIA [None]
